FAERS Safety Report 8838040 (Version 1)
Quarter: 2012Q4

REPORT INFORMATION
  Report Type: 
  Country: JP (occurrence: JP)
  Receive Date: 20121012
  Receipt Date: 20121012
  Transmission Date: 20130627
  Serious: Yes (Other)
  Sender: FDA-Public Use
  Company Number: JP-ASTELLAS-2012JP009490

PATIENT
  Age: 75 Year
  Sex: Male

DRUGS (7)
  1. VESICARE [Suspect]
     Indication: HYPERTONIC BLADDER
     Dosage: 5 mg, UID/QD
     Route: 048
     Dates: start: 201101, end: 20120927
  2. HARNAL [Concomitant]
     Indication: BENIGN PROSTATIC HYPERPLASIA
     Route: 048
  3. AVOLVE [Concomitant]
     Route: 048
  4. ATELEC [Concomitant]
     Route: 048
  5. MICAMLO [Concomitant]
     Route: 048
  6. DIOVAN [Concomitant]
     Route: 048
  7. MUCOSTA [Concomitant]
     Route: 065

REACTIONS (1)
  - Dementia [Unknown]
